FAERS Safety Report 4432017-5 (Version None)
Quarter: 2004Q3

REPORT INFORMATION
  Report Type: 
  Country: None (occurrence: None)
  Receive Date: 20040819
  Receipt Date: 20040727
  Transmission Date: 20050211
  Serious: Yes (Hospitalization)
  Sender: FDA-Public Use
  Company Number: M2004-1027

PATIENT
  Age: 72 Year
  Sex: Female

DRUGS (6)
  1. RIMACTANE [Suspect]
     Indication: STAPHYLOCOCCAL INFECTION
  2. CIPROFLOXACIN [Suspect]
     Indication: ESCHERICHIA INFECTION
  3. LINEZOLID ; REGIMEN [Suspect]
     Indication: STAPHYLOCOCCAL INFECTION
  4. INSULIN [Concomitant]
  5. CITALOPRAM [Concomitant]
  6. LORMETAZEPAM [Concomitant]

REACTIONS (3)
  - DRUG INTERACTION POTENTIATION [None]
  - OPTIC NEURITIS [None]
  - VISION BLURRED [None]
